FAERS Safety Report 11252759 (Version 1)
Quarter: 2015Q3

REPORT INFORMATION
  Report Type: Report from Study
  Country: KR (occurrence: KR)
  Receive Date: 20150708
  Receipt Date: 20150708
  Transmission Date: 20151125
  Serious: Yes (Hospitalization)
  Sender: FDA-Public Use
  Company Number: KR-JNJFOC-20150704118

PATIENT
  Sex: Male
  Weight: 55 kg

DRUGS (12)
  1. MUCOSTA [Concomitant]
     Active Substance: REBAMIPIDE
     Indication: CEREBROVASCULAR DISORDER
     Dosage: DAILY DOSE 2 TAB
     Route: 065
     Dates: start: 20140402, end: 20140812
  2. MEVALOTIN [Concomitant]
     Active Substance: PRAVASTATIN SODIUM
     Indication: CEREBROVASCULAR DISORDER
     Route: 065
     Dates: start: 20130513, end: 20140812
  3. RYTMONORMA [Concomitant]
     Indication: HYPERTENSION
     Dosage: DAILY DOSE 2 TAB
     Route: 065
     Dates: start: 20140302, end: 20140510
  4. CONCOR [Concomitant]
     Active Substance: BISOPROLOL FUMARATE
     Indication: HYPERTENSION
     Dosage: DAILY DOSE 2.5MG
     Route: 065
     Dates: start: 20140611, end: 20140916
  5. NORVASC [Concomitant]
     Active Substance: AMLODIPINE BESYLATE
     Indication: HYPERTENSION
     Dosage: DAILY DOSE 5MG
     Route: 065
  6. DIABEX [Concomitant]
     Active Substance: METFORMIN HYDROCHLORIDE
     Indication: DIABETES MELLITUS
     Dosage: DAILY DOSE 500MG
     Route: 065
     Dates: start: 20130715
  7. FEROBA [Concomitant]
     Indication: ANAEMIA
     Dosage: DAILY DOSE 256MG
     Route: 065
  8. TAMBOCOR [Concomitant]
     Active Substance: FLECAINIDE ACETATE
     Indication: HYPERTENSION
     Dosage: DAILY DOSE 150MG
     Route: 065
     Dates: start: 20150204
  9. XARELTO [Suspect]
     Active Substance: RIVAROXABAN
     Indication: THROMBOSIS PROPHYLAXIS
     Route: 048
     Dates: start: 20140512
  10. XARELTO [Suspect]
     Active Substance: RIVAROXABAN
     Indication: ATRIAL FIBRILLATION
     Route: 048
     Dates: start: 20140512
  11. RANITIDINE [Concomitant]
     Active Substance: RANITIDINE\RANITIDINE HYDROCHLORIDE
     Indication: CEREBROVASCULAR DISORDER
     Route: 065
     Dates: start: 20130503
  12. XARELTO [Suspect]
     Active Substance: RIVAROXABAN
     Indication: CEREBROVASCULAR ACCIDENT PROPHYLAXIS
     Route: 048
     Dates: start: 20140512

REACTIONS (2)
  - Pericardial effusion [Recovered/Resolved]
  - Dizziness [Recovered/Resolved]

NARRATIVE: CASE EVENT DATE: 20140701
